FAERS Safety Report 9483710 (Version 2)
Quarter: 2013Q3

REPORT INFORMATION
  Report Type: Spontaneous
  Country: CA (occurrence: CA)
  Receive Date: 20130828
  Receipt Date: 20130828
  Transmission Date: 20140515
  Serious: Yes (Hospitalization, Other)
  Sender: FDA-Public Use
  Company Number: CA-AMGEN-KDL310417

PATIENT
  Age: 77 Year
  Sex: Female
  Weight: 64.5 kg

DRUGS (15)
  1. ENBREL [Suspect]
     Indication: RHEUMATOID ARTHRITIS
     Dosage: UNK UNK, QWK
     Route: 058
     Dates: start: 20040505
  2. ALLOPURINOL [Concomitant]
     Dosage: UNK UNK, UNK
  3. DIGOXIN [Concomitant]
     Dosage: UNK UNK, UNK
  4. FOLIC ACID [Concomitant]
     Dosage: UNK UNK, UNK
  5. ASPIRIN/DIPYRIDAMOLE [Concomitant]
     Dosage: UNK UNK, UNK
  6. FUROSEMIDE [Concomitant]
     Dosage: UNK UNK, UNK
  7. LANSOPRAZOLE [Concomitant]
     Dosage: UNK UNK, UNK
  8. LEVOTHRYROXINE SODIUM [Concomitant]
     Dosage: UNK UNK, UNK
  9. LOSARTAN POTASSIUM [Concomitant]
     Dosage: UNK UNK, UNK
  10. UNSPECIFIED MEDICATION [Concomitant]
     Dosage: UNK UNK, UNK
  11. PROPRANOLOL HYDROCHLORIDE [Concomitant]
     Dosage: UNK UNK, UNK
  12. LAXATIVES [Concomitant]
     Dosage: UNK UNK, UNK
  13. SALMON OIL [Concomitant]
     Dosage: UNK UNK, UNK
  14. CALCIUM [Concomitant]
     Dosage: UNK UNK, UNK
  15. FERROUS SULFATE [Concomitant]
     Dosage: UNK UNK, UNK

REACTIONS (8)
  - Cholelithiasis [Unknown]
  - Liver injury [Unknown]
  - Pancreatitis [Unknown]
  - Post procedural constipation [Unknown]
  - Abdominal hernia [Unknown]
  - Localised oedema [Unknown]
  - Anaemia [Unknown]
  - Weight increased [Unknown]
